FAERS Safety Report 6565996-0 (Version None)
Quarter: 2010Q1

REPORT INFORMATION
  Report Type: 
  Country: None (occurrence: None)
  Receive Date: 20100129
  Receipt Date: 20100129
  Transmission Date: 20100710
  Serious: Yes (Life-Threatening)
  Sender: FDA-Public Use
  Company Number: None

PATIENT
  Sex: Male

DRUGS (1)
  1. TARCEVA [Suspect]
     Indication: LUNG NEOPLASM MALIGNANT
     Dosage: 150 DAILY ORAL
     Route: 048
     Dates: start: 20100127

REACTIONS (2)
  - CEREBROVASCULAR ACCIDENT [None]
  - DISORIENTATION [None]
